FAERS Safety Report 24774004 (Version 1)
Quarter: 2024Q4

REPORT INFORMATION
  Report Type: Spontaneous
  Country: US (occurrence: US)
  Receive Date: 20241225
  Receipt Date: 20241225
  Transmission Date: 20250114
  Serious: No
  Sender: SANOFI AVENTIS
  Company Number: US-SANOFI-02343724

PATIENT
  Age: 55 Year
  Sex: Female
  Weight: 123 kg

DRUGS (1)
  1. XENPOZYME [Suspect]
     Active Substance: OLIPUDASE ALFA-RPCP
     Indication: Niemann-Pick disease
     Dosage: 240 MG, QOW
     Route: 042

REACTIONS (1)
  - Ill-defined disorder [Unknown]
